FAERS Safety Report 9104983 (Version 1)
Quarter: 2013Q1

REPORT INFORMATION
  Report Type: Spontaneous
  Country: US (occurrence: US)
  Receive Date: 20130220
  Receipt Date: 20130220
  Transmission Date: 20140127
  Serious: Yes (Other)
  Sender: FDA-Public Use
  Company Number: US-ELI_LILLY_AND_COMPANY-US201301002360

PATIENT
  Sex: Male

DRUGS (5)
  1. HUMULIN NPH [Suspect]
     Dosage: 100 U, UNK
  2. HUMULIN NPH [Suspect]
     Dosage: 50 U, UNK
  3. HUMULIN 30% REGULAR, 70% NPH [Suspect]
     Dosage: 70 U, BID
  4. HUMULIN 30% REGULAR, 70% NPH [Suspect]
     Dosage: 35 U, BID
  5. HUMULIN REGULAR [Suspect]
     Dosage: 5 U, PRN

REACTIONS (1)
  - Cholelithiasis [Unknown]
